FAERS Safety Report 6086924-0 (Version None)
Quarter: 2009Q1

REPORT INFORMATION
  Report Type: 
  Country: None (occurrence: None)
  Receive Date: 20090223
  Receipt Date: 20090210
  Transmission Date: 20090719
  Serious: Yes (Other)
  Sender: FDA-Public Use
  Company Number: US-ROCHE-573937

PATIENT
  Sex: Male

DRUGS (5)
  1. PEG-INTERFERON A-2A (RO 25-8310) [Suspect]
     Indication: HEPATITIS C
     Dosage: FORM REPORTED AS: PREFILLED SYRINGE, PATIENT IN WEEK 34
     Route: 065
     Dates: start: 20080620
  2. RIBAVIRIN [Suspect]
     Indication: HEPATITIS C
     Dosage: DIVIDED DOSES
     Route: 065
     Dates: start: 20080620
  3. RIBAVIRIN [Suspect]
     Dosage: MISSED FEW DOSES, DOSAGE REDUCED
     Route: 065
  4. RIBAVIRIN [Suspect]
     Dosage: DOSAGE INCREASED, PATIENT IN WEEK 34
     Route: 065
  5. FLUCONAZOLE [Concomitant]
     Indication: COCCIDIOIDOMYCOSIS

REACTIONS (9)
  - ANAEMIA [None]
  - FATIGUE [None]
  - GASTROENTERITIS VIRAL [None]
  - INTERVERTEBRAL DISC PROTRUSION [None]
  - LUNG NEOPLASM [None]
  - NASOPHARYNGITIS [None]
  - OEDEMA PERIPHERAL [None]
  - PRURITUS [None]
  - PYREXIA [None]
